FAERS Safety Report 9103434 (Version 1)
Quarter: 2013Q1

REPORT INFORMATION
  Report Type: Spontaneous
  Country: US (occurrence: US)
  Receive Date: 20130219
  Receipt Date: 20130219
  Transmission Date: 20140127
  Serious: No
  Sender: FDA-Public Use
  Company Number: US-ASTRAZENECA-2013SE09465

PATIENT
  Age: 58 Year
  Sex: Male
  Weight: 93 kg

DRUGS (9)
  1. PULMICORT FLEXHALER [Suspect]
     Indication: PERTUSSIS
     Dosage: 180 MCG 1 PUFF BID
     Route: 055
     Dates: start: 20130205, end: 20130205
  2. PULMICORT FLEXHALER [Suspect]
     Indication: ASTHMA
     Dosage: 180 MCG 1 PUFF BID
     Route: 055
     Dates: start: 20130205, end: 20130205
  3. PULMICORT FLEXHALER [Suspect]
     Indication: PERTUSSIS
     Dosage: 180 MCG 1 PUFF BID
     Route: 055
     Dates: start: 20130208
  4. PULMICORT FLEXHALER [Suspect]
     Indication: ASTHMA
     Dosage: 180 MCG 1 PUFF BID
     Route: 055
     Dates: start: 20130208
  5. LISINOPRIL [Suspect]
     Route: 048
  6. CODEINE [Concomitant]
     Indication: COUGH
  7. BENZONATE [Concomitant]
     Indication: COUGH
  8. FENOFIBRATE [Concomitant]
  9. METFORMIN [Concomitant]

REACTIONS (3)
  - Viral infection [Unknown]
  - Cough [Unknown]
  - Drug dose omission [Unknown]
